FAERS Safety Report 4889717-2 (Version None)
Quarter: 2006Q1

REPORT INFORMATION
  Report Type: 
  Country: None (occurrence: None)
  Receive Date: 20060124
  Receipt Date: 20050317
  Transmission Date: 20060701
  Serious: Yes (Hospitalization, Disabling, Other)
  Sender: FDA-Public Use
  Company Number: US-MERCK-0503USA03413

PATIENT
  Age: 37 Year
  Sex: Female
  Weight: 57 kg

DRUGS (7)
  1. VIOXX [Suspect]
     Indication: SHOULDER PAIN
     Route: 048
     Dates: start: 20030101, end: 20041101
  2. VICODIN [Concomitant]
     Route: 065
  3. LEXAPRO [Concomitant]
     Route: 065
  4. NEURONTIN [Concomitant]
     Route: 065
  5. DURAGESIC-100 [Concomitant]
     Route: 065
  6. AMBIEN [Concomitant]
     Route: 065
  7. FERROUS SULFATE [Concomitant]
     Route: 065

REACTIONS (13)
  - BRONCHITIS [None]
  - CEREBROVASCULAR ACCIDENT [None]
  - CONVULSION [None]
  - DERMATITIS CONTACT [None]
  - DYSPHAGIA [None]
  - GASTROINTESTINAL HAEMORRHAGE [None]
  - HAEMOPTYSIS [None]
  - HEADACHE [None]
  - HEPATIC ENZYME INCREASED [None]
  - MUSCULOSKELETAL CHEST PAIN [None]
  - NEURALGIA [None]
  - PERICARDITIS [None]
  - TREMOR [None]
